FAERS Safety Report 10480654 (Version 1)
Quarter: 2014Q3

REPORT INFORMATION
  Report Type: Spontaneous
  Country: US (occurrence: None)
  Receive Date: 20140926
  Receipt Date: 20140926
  Transmission Date: 20150326
  Serious: Yes (Other)
  Sender: FDA-Public Use
  Company Number: None

PATIENT
  Age: 88 Year
  Sex: Female

DRUGS (4)
  1. TYKERB [Suspect]
     Active Substance: LAPATINIB DITOSYLATE
     Indication: BREAST CANCER
     Route: 048
     Dates: start: 20140913, end: 20140919
  2. CAPECITABINE [Suspect]
     Active Substance: CAPECITABINE
     Indication: LUNG NEOPLASM MALIGNANT
     Route: 048
     Dates: start: 20140913, end: 20140919
  3. TYKERB [Suspect]
     Active Substance: LAPATINIB DITOSYLATE
     Indication: LUNG NEOPLASM MALIGNANT
     Route: 048
     Dates: start: 20140913, end: 20140919
  4. CAPECITABINE [Suspect]
     Active Substance: CAPECITABINE
     Indication: BREAST CANCER
     Route: 048
     Dates: start: 20140913, end: 20140919

REACTIONS (3)
  - Diet refusal [None]
  - Somnolence [None]
  - Diarrhoea [None]

NARRATIVE: CASE EVENT DATE: 20140913
